FAERS Safety Report 8377459-0 (Version None)
Quarter: 2012Q2

REPORT INFORMATION
  Report Type: 
  Country: None (occurrence: None)
  Receive Date: 20120522
  Receipt Date: 20110708
  Transmission Date: 20120825
  Serious: No
  Sender: FDA-Public Use
  Company Number: US-ASTRAZENECA-2011SE40956

PATIENT
  Age: 86 Year
  Sex: Male

DRUGS (8)
  1. PRILOSEC [Suspect]
     Route: 048
  2. CARAFATE [Suspect]
  3. DALMANE [Suspect]
  4. ATROPINE [Suspect]
  5. FELDENE [Suspect]
  6. CODEINE SULFATE [Suspect]
  7. MEDROL [Suspect]
  8. LASIX [Suspect]

REACTIONS (6)
  - TREMOR [None]
  - VISION BLURRED [None]
  - GAIT DISTURBANCE [None]
  - HEADACHE [None]
  - ASTHENIA [None]
  - MALAISE [None]
